FAERS Safety Report 8662479 (Version 3)
Quarter: 2014Q1

REPORT INFORMATION
  Report Type: Spontaneous
  Country: US (occurrence: US)
  Receive Date: 20120712
  Receipt Date: 20140224
  Transmission Date: 20141002
  Serious: No
  Sender: FDA-Public Use
  Company Number: US-PFIZER INC-2012166022

PATIENT
  Age: 38 Year
  Sex: Female
  Weight: 63.5 kg

DRUGS (6)
  1. CHANTIX [Suspect]
     Indication: SMOKING CESSATION THERAPY
     Dosage: 0.5 MG, 1X/DAY
     Route: 048
     Dates: start: 201110, end: 201202
  2. CHANTIX [Suspect]
     Dosage: 0.5 MG, 2X/DAY
     Route: 048
     Dates: start: 20120620
  3. LAMICTAL [Concomitant]
     Indication: DEPRESSION
     Dosage: UNK
  4. PAXIL [Concomitant]
     Indication: DEPRESSION
     Dosage: UNK
  5. VYVANSE [Concomitant]
     Dosage: UNK
  6. XANAX [Concomitant]
     Indication: ANXIETY
     Dosage: UNK

REACTIONS (3)
  - Depression [Unknown]
  - Stress [Unknown]
  - Feeling abnormal [Unknown]
